FAERS Safety Report 11964741 (Version 2)
Quarter: 2016Q1

REPORT INFORMATION
  Report Type: Spontaneous
  Country: US (occurrence: US)
  Receive Date: 20160127
  Receipt Date: 20160223
  Transmission Date: 20160526
  Serious: Yes (Other)
  Sender: FDA-Public Use
  Company Number: US-BEH-2016057922

PATIENT
  Age: 67 Year
  Sex: Female
  Weight: 69 kg

DRUGS (34)
  1. VITAMIN B12 [Concomitant]
     Active Substance: CYANOCOBALAMIN
  2. EPIPEN [Concomitant]
     Active Substance: EPINEPHRINE
  3. MUCINEX [Concomitant]
     Active Substance: GUAIFENESIN
  4. NEXIUM [Concomitant]
     Active Substance: ESOMEPRAZOLE MAGNESIUM
  5. VALTREX [Concomitant]
     Active Substance: VALACYCLOVIR HYDROCHLORIDE
  6. ASTELIN [Concomitant]
     Active Substance: AZELASTINE HYDROCHLORIDE
  7. LIDOCAINE. [Concomitant]
     Active Substance: LIDOCAINE
  8. KLOR-CON [Concomitant]
     Active Substance: POTASSIUM CHLORIDE
  9. LUNESTA [Concomitant]
     Active Substance: ESZOPICLONE
  10. ASMANEX [Concomitant]
     Active Substance: MOMETASONE FUROATE
  11. ACETAMINOPHEN. [Concomitant]
     Active Substance: ACETAMINOPHEN
  12. DIPHENHYDRAMINE. [Concomitant]
     Active Substance: DIPHENHYDRAMINE
  13. HIZENTRA [Suspect]
     Active Substance: HUMAN IMMUNOGLOBULIN G
     Dosage: 4 GM VIALS
     Route: 058
  14. AVELOX [Concomitant]
     Active Substance: MOXIFLOXACIN HYDROCHLORIDE
  15. HYDROCHLORTHIAZIDE [Concomitant]
     Active Substance: HYDROCHLOROTHIAZIDE
  16. ADDERALL [Concomitant]
     Active Substance: AMPHETAMINE ASPARTATE\AMPHETAMINE SULFATE\DEXTROAMPHETAMINE SACCHARATE\DEXTROAMPHETAMINE SULFATE
  17. POTASSIUM [Concomitant]
     Active Substance: POTASSIUM
  18. MOBIC [Concomitant]
     Active Substance: MELOXICAM
  19. VENTOLIN [Concomitant]
     Active Substance: ALBUTEROL SULFATE
  20. CRESTOR [Concomitant]
     Active Substance: ROSUVASTATIN CALCIUM
  21. ESTRADIOL. [Concomitant]
     Active Substance: ESTRADIOL
  22. MAGNESIUM [Concomitant]
     Active Substance: MAGNESIUM
  23. CHROMIUM PICOLINATE [Concomitant]
     Active Substance: CHROMIUM PICOLINATE
  24. ZINC [Concomitant]
     Active Substance: ZINC\ZINC CHLORIDE
  25. LIDOCAINE/PRILOCAINE [Concomitant]
  26. HIZENTRA [Suspect]
     Active Substance: HUMAN IMMUNOGLOBULIN G
     Dosage: 4 GM 20 ML VIAL
     Route: 058
  27. HIZENTRA [Suspect]
     Active Substance: HUMAN IMMUNOGLOBULIN G
     Indication: IMMUNODEFICIENCY COMMON VARIABLE
     Dosage: 10 GM VIALS
     Route: 058
  28. RELPAX [Concomitant]
     Active Substance: ELETRIPTAN HYDROBROMIDE
  29. FLONASE [Concomitant]
     Active Substance: FLUTICASONE PROPIONATE
  30. LEVOTHYROXINE. [Concomitant]
     Active Substance: LEVOTHYROXINE
  31. BIAXIN [Concomitant]
     Active Substance: CLARITHROMYCIN
  32. DOXYCYCLINE. [Concomitant]
     Active Substance: DOXYCYCLINE
  33. SINGULAIR [Concomitant]
     Active Substance: MONTELUKAST SODIUM
  34. REPLESTA [Concomitant]

REACTIONS (5)
  - Retinal detachment [Unknown]
  - Eye operation [Unknown]
  - Eye operation [Unknown]
  - Eye operation [Unknown]
  - Sinusitis [Unknown]

NARRATIVE: CASE EVENT DATE: 20151215
